FAERS Safety Report 22209013 (Version 3)
Quarter: 2023Q2

REPORT INFORMATION
  Report Type: Spontaneous
  Country: US (occurrence: None)
  Receive Date: 20230413
  Receipt Date: 20230504
  Transmission Date: 20230721
  Serious: Yes (Other)
  Sender: FDA-Public Use
  Company Number: US-FARMAPROD-202304-0882

PATIENT
  Age: 78 Year
  Sex: Female

DRUGS (5)
  1. OXERVATE [Suspect]
     Active Substance: CENEGERMIN-BKBJ
     Indication: Neurotrophic keratopathy
     Route: 047
     Dates: start: 20230320
  2. OXERVATE [Suspect]
     Active Substance: CENEGERMIN-BKBJ
     Indication: Ulcerative keratitis
  3. MOXIFLOXACIN [Concomitant]
     Active Substance: MOXIFLOXACIN
  4. ALPHAGAN P [Concomitant]
     Active Substance: BRIMONIDINE TARTRATE
  5. DORZOLAMIDE [Concomitant]
     Active Substance: DORZOLAMIDE

REACTIONS (8)
  - Surgery [Unknown]
  - Trigeminal neuralgia [Unknown]
  - Eye discharge [Unknown]
  - Swelling of eyelid [Not Recovered/Not Resolved]
  - Eye pain [Unknown]
  - Inappropriate schedule of product administration [Unknown]
  - Product storage error [Unknown]
  - Wrong technique in product usage process [Unknown]

NARRATIVE: CASE EVENT DATE: 20230321
